FAERS Safety Report 8244294-3 (Version None)
Quarter: 2012Q1

REPORT INFORMATION
  Report Type: 
  Country: None (occurrence: None)
  Receive Date: 20120329
  Receipt Date: 20120323
  Transmission Date: 20120608
  Serious: Yes (Death, Hospitalization)
  Sender: FDA-Public Use
  Company Number: DE-PFIZER INC-2012051862

PATIENT
  Age: 58 Year
  Sex: Female
  Weight: 70 kg

DRUGS (7)
  1. METOPROLOL TARTRATE [Concomitant]
     Dosage: 190 MG, HALF A TABLET DAILY
  2. AMLODIPINE BESYLATE AND VALSARTAN [Concomitant]
     Dosage: 10 / 160 MG
  3. INSULIN DETEMIR [Concomitant]
     Dosage: 10 IU, UNK
     Route: 058
  4. FENISTIL [Concomitant]
     Indication: PREMEDICATION
     Dosage: 4 MG, UNK
  5. TEMSIROLIMUS [Suspect]
     Indication: RENAL CANCER
     Dosage: 25 MG, 1X/DAY
     Route: 042
     Dates: start: 20110825, end: 20110901
  6. NOVALGIN [Concomitant]
     Dosage: 30 GTT, 3X/DAY
  7. DEXAMETHASONE [Concomitant]
     Indication: PREMEDICATION
     Dosage: 8 MG, UNK

REACTIONS (1)
  - GASTROINTESTINAL HAEMORRHAGE [None]
